FAERS Safety Report 23396160 (Version 2)
Quarter: 2024Q1

REPORT INFORMATION
  Report Type: Spontaneous
  Country: JP (occurrence: JP)
  Receive Date: 20240112
  Receipt Date: 20240125
  Transmission Date: 20240409
  Serious: Yes (Hospitalization)
  Sender: FDA-Public Use
  Company Number: JP-MYLANLABS-2024M1002874

PATIENT
  Age: 83 Year
  Sex: Female

DRUGS (9)
  1. CARBOPLATIN [Suspect]
     Active Substance: CARBOPLATIN
     Indication: Pancreatic neoplasm
     Dosage: UNK
     Route: 065
  2. GIMERACIL\OTERACIL\TEGAFUR [Suspect]
     Active Substance: GIMERACIL\OTERACIL POTASSIUM\TEGAFUR
     Indication: Pancreatic neoplasm
     Dosage: UNK
     Route: 065
  3. ETOPOSIDE [Suspect]
     Active Substance: ETOPOSIDE
     Indication: Pancreatic neoplasm
     Dosage: UNK
     Route: 065
  4. AMRUBICIN [Suspect]
     Active Substance: AMRUBICIN
     Indication: Pancreatic neoplasm
     Dosage: UNK
     Route: 065
  5. GEMCITABINE [Suspect]
     Active Substance: GEMCITABINE
     Indication: Pancreatic neoplasm
     Dosage: UNK
     Route: 065
  6. PACLITAXEL [Suspect]
     Active Substance: PACLITAXEL
     Indication: Pancreatic neoplasm
     Dosage: UNK
     Route: 065
  7. LEUCOVORIN [Concomitant]
     Active Substance: LEUCOVORIN\LEUCOVORIN CALCIUM
     Indication: Pancreatic neoplasm
     Dosage: UNK
     Route: 065
  8. FLUOROURACIL [Concomitant]
     Active Substance: FLUOROURACIL
     Indication: Pancreatic neoplasm
     Dosage: UNK
     Route: 065
  9. IRINOTECAN [Concomitant]
     Active Substance: IRINOTECAN
     Indication: Pancreatic neoplasm
     Dosage: UNK
     Route: 065

REACTIONS (1)
  - Drug ineffective [Unknown]
